FAERS Safety Report 18243864 (Version 1)
Quarter: 2020Q3

REPORT INFORMATION
  Report Type: Spontaneous
  Country: IT (occurrence: IT)
  Receive Date: 20200908
  Receipt Date: 20200908
  Transmission Date: 20201103
  Serious: Yes (Other)
  Sender: FDA-Public Use
  Company Number: NVSC2020IT240779

PATIENT
  Age: 40 Year
  Sex: Female
  Weight: 54 kg

DRUGS (7)
  1. OMEPRAZOLO ABC [Concomitant]
     Indication: PRODUCT USED FOR UNKNOWN INDICATION
     Dosage: UNK
     Route: 065
  2. ZOMETA [Concomitant]
     Active Substance: ZOLEDRONIC ACID
     Indication: METASTASES TO BONE
     Dosage: 4 MG, CYCLIC
     Route: 065
  3. DIBASE [Concomitant]
     Active Substance: CHOLECALCIFEROL
     Indication: PRODUCT USED FOR UNKNOWN INDICATION
     Dosage: UNK (10.000 U.I./ML GOCCE ORALLI, SOLUZIONE)
     Route: 065
  4. KEYTRUDA [Suspect]
     Active Substance: PEMBROLIZUMAB
     Indication: LUNG NEOPLASM MALIGNANT
     Dosage: 200 MG, CYCLIC
     Route: 042
     Dates: start: 20191108, end: 20200819
  5. PEMETREXED DISODIUM [Suspect]
     Active Substance: PEMETREXED DISODIUM
     Indication: LUNG NEOPLASM MALIGNANT
     Dosage: 740 MG, UNKNOWN
     Route: 042
     Dates: start: 20200121, end: 20200819
  6. CARBOPLATIN. [Suspect]
     Active Substance: CARBOPLATIN
     Dosage: 600 MG, UNKNOWN
     Route: 065
     Dates: start: 20191230
  7. CARBOPLATIN. [Suspect]
     Active Substance: CARBOPLATIN
     Indication: LUNG NEOPLASM MALIGNANT
     Dosage: 600 MG, UNKNOWN
     Route: 065
     Dates: start: 20191221

REACTIONS (8)
  - Vomiting [Recovering/Resolving]
  - Conjunctivitis [Recovering/Resolving]
  - Nephropathy toxic [Recovering/Resolving]
  - Erythema [Recovering/Resolving]
  - Face oedema [Recovering/Resolving]
  - Laryngeal oedema [Recovering/Resolving]
  - Nausea [Recovering/Resolving]
  - Asthenia [Recovering/Resolving]

NARRATIVE: CASE EVENT DATE: 20200121
